FAERS Safety Report 25848226 (Version 1)
Quarter: 2025Q3

REPORT INFORMATION
  Report Type: Spontaneous
  Country: US (occurrence: None)
  Receive Date: 20250924
  Receipt Date: 20250924
  Transmission Date: 20251021
  Serious: No
  Sender: FDA-CTU
  Company Number: None

PATIENT
  Age: 69 Year
  Sex: Female

DRUGS (3)
  1. ACECLOFENAC\ACETAMINOPHEN [Suspect]
     Active Substance: ACECLOFENAC\ACETAMINOPHEN
     Indication: Chronic obstructive pulmonary disease
     Dosage: FREQUENCY : TWICE A DAY;?OTHER ROUTE : INHALATION;?
     Route: 055
     Dates: start: 20250311
  2. OHTUVAYRE [Suspect]
     Active Substance: ENSIFENTRINE
  3. VIOS LC AEROSOL DELIV SYST [Concomitant]

REACTIONS (2)
  - Treatment noncompliance [None]
  - Memory impairment [None]

NARRATIVE: CASE EVENT DATE: 20250311
